FAERS Safety Report 4673343-4 (Version None)
Quarter: 2005Q2

REPORT INFORMATION
  Report Type: 
  Country: None (occurrence: None)
  Receive Date: 20050523
  Receipt Date: 20050513
  Transmission Date: 20051028
  Serious: Yes (Death, Hospitalization, Other)
  Sender: FDA-Public Use
  Company Number: 2005-02-1504

PATIENT
  Age: 55 Year
  Sex: Male

DRUGS (1)
  1. UNITRON PEG (PEG-INTERFERON ALFA-2B) INJECTABLE [Suspect]
     Indication: HEPATITIS C
     Dosage: 80 MCG SUBCUTANEOUS
     Route: 058
     Dates: start: 20040801

REACTIONS (25)
  - BLOOD CREATININE INCREASED [None]
  - BRAIN DEATH [None]
  - BRAIN OEDEMA [None]
  - BRAIN STEM SYNDROME [None]
  - CRYOGLOBULINAEMIA [None]
  - DISEASE RECURRENCE [None]
  - ELECTROCARDIOGRAM ABNORMAL [None]
  - HYPERTENSION [None]
  - HYPOTENSION [None]
  - INJURY [None]
  - INTERSTITIAL LUNG DISEASE [None]
  - ISCHAEMIA [None]
  - LOSS OF CONSCIOUSNESS [None]
  - LUNG INFILTRATION [None]
  - PLEURAL EFFUSION [None]
  - PNEUMONIA [None]
  - PULMONARY OEDEMA [None]
  - RENAL DISORDER [None]
  - RESPIRATORY ARREST [None]
  - RESPIRATORY FAILURE [None]
  - SINUS TACHYCARDIA [None]
  - TACHYARRHYTHMIA [None]
  - TACHYCARDIA [None]
  - THERAPY NON-RESPONDER [None]
  - URINARY CASTS [None]
